FAERS Safety Report 11054579 (Version 1)
Quarter: 2015Q2

REPORT INFORMATION
  Report Type: Spontaneous
  Country: GB (occurrence: GB)
  Receive Date: 20150422
  Receipt Date: 20150422
  Transmission Date: 20150821
  Serious: Yes (Death, Hospitalization)
  Sender: FDA-Public Use
  Company Number: GB-TEVA-555656ACC

PATIENT
  Age: 84 Year
  Sex: Female
  Weight: 68.4 kg

DRUGS (8)
  1. TRIMETHOPRIM. [Suspect]
     Active Substance: TRIMETHOPRIM
     Indication: URINARY TRACT INFECTION
     Dosage: 400 MILLIGRAM DAILY;
     Route: 048
     Dates: start: 20150317, end: 20150324
  2. PRADAXA [Suspect]
     Active Substance: DABIGATRAN ETEXILATE MESYLATE
     Indication: ATRIAL FIBRILLATION
     Dosage: 240 MILLIGRAM DAILY;
     Route: 048
     Dates: start: 20150128, end: 20150330
  3. AMLODIPIN [Concomitant]
     Active Substance: AMLODIPINE BESYLATE
  4. PARACETAMOL [Concomitant]
     Active Substance: ACETAMINOPHEN
  5. CODEIN [Concomitant]
     Active Substance: CODEINE
  6. TIMOLOL [Concomitant]
     Active Substance: TIMOLOL
  7. NITROFURANTOIN. [Concomitant]
     Active Substance: NITROFURANTOIN
     Indication: URINARY TRACT INFECTION
     Dates: start: 20150325
  8. TRAVOPROST [Concomitant]
     Active Substance: TRAVOPROST

REACTIONS (6)
  - Anaemia [Not Recovered/Not Resolved]
  - Vaginal haemorrhage [Fatal]
  - Confusional state [Not Recovered/Not Resolved]
  - Bacterial infection [Unknown]
  - Thrombocytopenia [Not Recovered/Not Resolved]
  - Feeling cold [Not Recovered/Not Resolved]

NARRATIVE: CASE EVENT DATE: 20150329
